FAERS Safety Report 15813651 (Version 2)
Quarter: 2019Q1

REPORT INFORMATION
  Report Type: Report from Study
  Country: US (occurrence: US)
  Receive Date: 20190111
  Receipt Date: 20190307
  Transmission Date: 20190417
  Serious: Yes (Hospitalization)
  Sender: FDA-Public Use
  Company Number: US-JNJFOC-20190112687

PATIENT
  Sex: Male

DRUGS (17)
  1. QUETIAPINE. [Concomitant]
     Active Substance: QUETIAPINE
  2. METAMUCIL [Concomitant]
     Active Substance: PLANTAGO SEED
  3. TAMSULOSIN [Concomitant]
     Active Substance: TAMSULOSIN
  4. ROSUVASTATIN. [Concomitant]
     Active Substance: ROSUVASTATIN
  5. IMBRUVICA [Suspect]
     Active Substance: IBRUTINIB
     Indication: NON-HODGKIN^S LYMPHOMA
     Route: 048
     Dates: start: 20181123, end: 2018
  6. BACTRIM [Concomitant]
     Active Substance: SULFAMETHOXAZOLE\TRIMETHOPRIM
  7. VITAMIN D3 [Concomitant]
     Active Substance: CHOLECALCIFEROL
  8. BYSTOLIC [Concomitant]
     Active Substance: NEBIVOLOL HYDROCHLORIDE
  9. METFORMIN [Concomitant]
     Active Substance: METFORMIN HYDROCHLORIDE
  10. LISINOPRIL. [Concomitant]
     Active Substance: LISINOPRIL
  11. LYRICA [Concomitant]
     Active Substance: PREGABALIN
  12. DULOXETINE. [Concomitant]
     Active Substance: DULOXETINE
  13. ALPRAZOLAM. [Concomitant]
     Active Substance: ALPRAZOLAM
  14. VENTOLIN [Concomitant]
     Active Substance: ALBUTEROL SULFATE
  15. ALLOPURINOL. [Concomitant]
     Active Substance: ALLOPURINOL
  16. OMEGA 3 [Concomitant]
     Active Substance: OMEGA-3 FATTY ACIDS
     Route: 065
  17. ACYCLOVIR. [Concomitant]
     Active Substance: ACYCLOVIR

REACTIONS (2)
  - Drug ineffective [Unknown]
  - Brain oedema [Unknown]
